FAERS Safety Report 13771149 (Version 1)
Quarter: 2017Q3

REPORT INFORMATION
  Report Type: Spontaneous
  Country: FI (occurrence: FI)
  Receive Date: 20170720
  Receipt Date: 20170720
  Transmission Date: 20171127
  Serious: Yes (Death, Hospitalization)
  Sender: FDA-Public Use
  Company Number: FI-ORION CORPORATION ORION PHARMA-TREX2017-2055

PATIENT
  Age: 83 Year
  Sex: Female

DRUGS (8)
  1. ATORVASTATIN [Concomitant]
     Active Substance: ATORVASTATIN
     Dosage: STRENGTH: 10 MG
     Route: 048
  2. LITALGIN [Concomitant]
     Active Substance: PITOFENONE
     Dosage: ONE TO THREE TIMES; STRENGTH: 500/5 MG
     Route: 048
     Dates: end: 20170117
  3. JANUVIA [Concomitant]
     Active Substance: SITAGLIPTIN PHOSPHATE
     Dosage: STRENGTH: 50 MG
     Route: 048
  4. MONTELUKAST [Concomitant]
     Active Substance: MONTELUKAST SODIUM
     Dosage: STRENGTH: 10 MG
     Route: 048
  5. BISOPROLOL [Concomitant]
     Active Substance: BISOPROLOL
     Dosage: STRENGTH: 5 MG
     Route: 048
  6. SERENASE [Concomitant]
     Active Substance: HALOPERIDOL
     Dosage: STRENGTH: 1 MG
     Route: 048
  7. MEMANTIN [Concomitant]
     Active Substance: MEMANTINE
     Dosage: STRENGTH: 10 MG
     Route: 048
  8. TREXAN [Suspect]
     Active Substance: METHOTREXATE SODIUM
     Indication: PITYRIASIS RUBRA PILARIS
     Dosage: STRENGTH: 2.5 MG
     Route: 048
     Dates: start: 20160801, end: 20170107

REACTIONS (2)
  - Diffuse alveolar damage [Fatal]
  - Atypical pneumonia [Fatal]

NARRATIVE: CASE EVENT DATE: 20170107
